FAERS Safety Report 10488340 (Version 1)
Quarter: 2014Q4

REPORT INFORMATION
  Report Type: Spontaneous
  Country: US (occurrence: US)
  Receive Date: 20141002
  Receipt Date: 20141002
  Transmission Date: 20150528
  Serious: Yes (Other)
  Sender: FDA-Public Use
  Company Number: US-BIOGENIDEC-2014BI100636

PATIENT
  Age: 29 Year

DRUGS (3)
  1. ETHANOL [Concomitant]
     Active Substance: ALCOHOL
  2. LAMOTRIGINE. [Concomitant]
     Active Substance: LAMOTRIGINE
  3. TECFIDERA [Suspect]
     Active Substance: DIMETHYL FUMARATE
     Indication: PRODUCT USED FOR UNKNOWN INDICATION

REACTIONS (5)
  - Suicide attempt [Unknown]
  - Somnolence [Unknown]
  - Lethargy [Unknown]
  - Agitation [Unknown]
  - Tachycardia [Unknown]
